APPROVED DRUG PRODUCT: FLUOCINOLONE ACETONIDE
Active Ingredient: FLUOCINOLONE ACETONIDE
Strength: 0.025%
Dosage Form/Route: OINTMENT;TOPICAL
Application: A040041 | Product #001
Applicant: SUN PHARMA CANADA INC
Approved: Sep 15, 1994 | RLD: No | RS: No | Type: DISCN